FAERS Safety Report 12908901 (Version 2)
Quarter: 2018Q1

REPORT INFORMATION
  Report Type: Spontaneous
  Country: US (occurrence: US)
  Receive Date: 20161103
  Receipt Date: 20180202
  Transmission Date: 20180508
  Serious: No
  Sender: FDA-Public Use
  Company Number: US-JAZZ-2016-US-016563

PATIENT
  Sex: Male

DRUGS (25)
  1. XYREM [Suspect]
     Active Substance: SODIUM OXYBATE
     Dosage: 4.5 G, BID
     Route: 048
     Dates: start: 201202
  2. ALBUTEROL SULFATE. [Concomitant]
     Active Substance: ALBUTEROL SULFATE
  3. PLAVIX [Concomitant]
     Active Substance: CLOPIDOGREL BISULFATE
  4. GABAPENTIN. [Concomitant]
     Active Substance: GABAPENTIN
  5. XYREM [Suspect]
     Active Substance: SODIUM OXYBATE
     Indication: NARCOLEPSY
     Dosage: 2.25 G, BID
     Route: 048
     Dates: start: 201111, end: 2011
  6. ADDERALL [Concomitant]
     Active Substance: AMPHETAMINE ASPARTATE\AMPHETAMINE SULFATE\DEXTROAMPHETAMINE SACCHARATE\DEXTROAMPHETAMINE SULFATE
  7. DEXAMETHASONE. [Concomitant]
     Active Substance: DEXAMETHASONE
  8. NUVIGIL [Concomitant]
     Active Substance: ARMODAFINIL
  9. PROAIR HFA [Concomitant]
     Active Substance: ALBUTEROL SULFATE
  10. SPIRIVA [Concomitant]
     Active Substance: TIOTROPIUM BROMIDE MONOHYDRATE
  11. MULTIVITAMINS [Concomitant]
     Active Substance: VITAMINS
  12. BREO ELLIPTA [Concomitant]
     Active Substance: FLUTICASONE FUROATE\VILANTEROL TRIFENATATE
  13. ATORVASTATIN [Concomitant]
     Active Substance: ATORVASTATIN
  14. METHYLPHENIDATE. [Concomitant]
     Active Substance: METHYLPHENIDATE
  15. SYMBICORT [Concomitant]
     Active Substance: BUDESONIDE\FORMOTEROL FUMARATE DIHYDRATE
  16. MIRAPEX [Concomitant]
     Active Substance: PRAMIPEXOLE DIHYDROCHLORIDE
  17. DULERA [Concomitant]
     Active Substance: FORMOTEROL FUMARATE DIHYDRATE\MOMETASONE FUROATE
  18. IBUPROFEN. [Concomitant]
     Active Substance: IBUPROFEN
  19. VITAMIN C [Concomitant]
     Active Substance: ASCORBIC ACID
  20. ASPIRIN. [Concomitant]
     Active Substance: ASPIRIN
  21. KETOCONAZOLE. [Concomitant]
     Active Substance: KETOCONAZOLE
  22. CALCIUM CITRATE [Concomitant]
     Active Substance: CALCIUM CITRATE
  23. PROVENTIL HFA [Concomitant]
     Active Substance: ALBUTEROL SULFATE
  24. XYREM [Suspect]
     Active Substance: SODIUM OXYBATE
     Indication: CATAPLEXY
     Dosage: DOSE ADJUSTMENTS
     Route: 048
     Dates: start: 2011, end: 201202
  25. FLONASE [Concomitant]
     Active Substance: FLUTICASONE PROPIONATE

REACTIONS (1)
  - Bronchitis [Not Recovered/Not Resolved]
